FAERS Safety Report 8445653-6 (Version None)
Quarter: 2012Q2

REPORT INFORMATION
  Report Type: 
  Country: None (occurrence: None)
  Receive Date: 20120618
  Receipt Date: 20120613
  Transmission Date: 20120825
  Serious: Yes (Hospitalization)
  Sender: FDA-Public Use
  Company Number: CA-JNJFOC-20120607109

PATIENT
  Sex: Female
  Weight: 55.5 kg

DRUGS (5)
  1. REMICADE [Suspect]
     Indication: CROHN'S DISEASE
     Route: 042
     Dates: start: 20060530
  2. MACROBID [Concomitant]
     Route: 065
  3. ALPRAZOLAM [Concomitant]
     Route: 065
  4. PERCOCET [Concomitant]
     Route: 065
  5. TRAMADOL HCL [Concomitant]
     Route: 065

REACTIONS (2)
  - DIARRHOEA [None]
  - PAIN [None]
